FAERS Safety Report 6354848-7 (Version None)
Quarter: 2009Q3

REPORT INFORMATION
  Report Type: 
  Country: None (occurrence: None)
  Receive Date: 20090914
  Receipt Date: 20090831
  Transmission Date: 20100115
  Serious: Yes (Other)
  Sender: FDA-Public Use
  Company Number: EG-ROCHE-653873

PATIENT
  Age: 69 Year

DRUGS (4)
  1. XELODA [Suspect]
     Route: 048
  2. TAXOL [Concomitant]
  3. ZOFRAN [Concomitant]
  4. DECADRON [Concomitant]

REACTIONS (2)
  - CONVULSION [None]
  - EPILEPSY [None]
